FAERS Safety Report 6758078-6 (Version None)
Quarter: 2010Q2

REPORT INFORMATION
  Report Type: 
  Country: None (occurrence: None)
  Receive Date: 20100607
  Receipt Date: 20100527
  Transmission Date: 20101027
  Serious: Yes (Hospitalization)
  Sender: FDA-Public Use
  Company Number: JP-ASTRAZENECA-2010SE24622

PATIENT
  Age: 70 Year
  Sex: Male

DRUGS (3)
  1. IRESSA [Suspect]
     Indication: LUNG ADENOCARCINOMA
     Route: 048
     Dates: start: 20100514
  2. TAXOTERE [Suspect]
     Dosage: DOSE UNKNOWN
     Route: 041
     Dates: start: 20100507, end: 20100513
  3. CARBOPLATIN [Suspect]
     Dosage: DOSE UNKNOWN
     Route: 041
     Dates: start: 20100507, end: 20100513

REACTIONS (1)
  - WHITE BLOOD CELL COUNT DECREASED [None]
